FAERS Safety Report 5816175-3 (Version None)
Quarter: 2008Q3

REPORT INFORMATION
  Report Type: 
  Country: None (occurrence: None)
  Receive Date: 20080721
  Receipt Date: 20080714
  Transmission Date: 20090109
  Serious: Yes (Life-Threatening, Hospitalization, Other)
  Sender: FDA-Public Use
  Company Number: A0735372A

PATIENT
  Age: 53 Year
  Sex: Male
  Weight: 134 kg

DRUGS (2)
  1. ARIXTRA [Suspect]
     Indication: PULMONARY EMBOLISM
     Dosage: 10MG PER DAY
     Route: 058
     Dates: start: 20080616, end: 20080620
  2. COUMADIN [Suspect]
     Indication: PULMONARY EMBOLISM
     Route: 048

REACTIONS (5)
  - HAEMATOMA [None]
  - HYPOTENSION [None]
  - INTERNATIONAL NORMALISED RATIO DECREASED [None]
  - RETROPERITONEAL HAEMORRHAGE [None]
  - SPLENIC HAEMORRHAGE [None]
